FAERS Safety Report 25572140 (Version 1)
Quarter: 2025Q3

REPORT INFORMATION
  Report Type: Spontaneous
  Country: CN (occurrence: CN)
  Receive Date: 20250717
  Receipt Date: 20250717
  Transmission Date: 20251020
  Serious: Yes (Hospitalization)
  Sender: BAYER HEALTHCARE PHARMACEUTICALS INC.
  Company Number: CN-BAYER-2025A094457

PATIENT
  Age: 58 Year
  Sex: Male
  Weight: 70 kg

DRUGS (3)
  1. KERENDIA [Suspect]
     Active Substance: FINERENONE
     Indication: Diabetic nephropathy
     Dosage: 20 MG, QD
     Route: 048
     Dates: start: 20250226, end: 20250628
  2. KERENDIA [Suspect]
     Active Substance: FINERENONE
     Indication: Proteinuria
  3. Shen yan kang fu [Concomitant]
     Indication: Diabetic nephropathy
     Dosage: 2.4 G, TID
     Route: 048
     Dates: start: 20250626, end: 20250628

REACTIONS (1)
  - Drug-induced liver injury [Recovering/Resolving]

NARRATIVE: CASE EVENT DATE: 20250628
